FAERS Safety Report 9576216 (Version 1)
Quarter: 2013Q4

REPORT INFORMATION
  Report Type: Spontaneous
  Country: US (occurrence: US)
  Receive Date: 20131001
  Receipt Date: 20131001
  Transmission Date: 20140711
  Serious: No
  Sender: FDA-Public Use
  Company Number: US-AMGEN-USASP2013001278

PATIENT
  Sex: Female
  Weight: 68.03 kg

DRUGS (10)
  1. ENBREL [Suspect]
     Indication: BEHCET^S SYNDROME
     Dosage: 50 MG, QWK
     Route: 058
  2. SERTRALINE [Concomitant]
     Dosage: 25 MG, UNK
  3. SYNTHROID [Concomitant]
     Dosage: 75 MUG, UNK
  4. CRESTOR [Concomitant]
     Dosage: 5 MG, UNK
  5. WARFARIN [Concomitant]
     Dosage: 2.5 MG, UNK
  6. VITAMIN B12                        /00056201/ [Concomitant]
     Dosage: 1000 MUG, UNK
  7. FISH OIL [Concomitant]
  8. COLCRYS [Concomitant]
     Dosage: 0.6 MG, UNK
  9. KADIAN [Concomitant]
     Dosage: 100 MG, UNK
  10. MULTIVITAMINS, PLAIN [Concomitant]
     Dosage: UNK

REACTIONS (1)
  - Drug ineffective [Unknown]
